FAERS Safety Report 4790069-7 (Version None)
Quarter: 2005Q4

REPORT INFORMATION
  Report Type: 
  Country: None (occurrence: None)
  Receive Date: 20051005
  Receipt Date: 20051005
  Transmission Date: 20060501
  Serious: Yes (Disabling)
  Sender: FDA-Public Use
  Company Number: None

PATIENT
  Sex: Male
  Weight: 113.3993 kg

DRUGS (1)
  1. CIALIS [Suspect]

REACTIONS (5)
  - ABNORMAL SENSATION IN EYE [None]
  - HEADACHE [None]
  - SCOTOMA [None]
  - VISUAL DISTURBANCE [None]
  - VISUAL FIELD DEFECT [None]
